FAERS Safety Report 6141166-5 (Version None)
Quarter: 2009Q1

REPORT INFORMATION
  Report Type: 
  Country: None (occurrence: None)
  Receive Date: 20090330
  Receipt Date: 20090330
  Transmission Date: 20090719
  Serious: Yes (Hospitalization)
  Sender: FDA-Public Use
  Company Number: None

PATIENT
  Age: 4 Year
  Sex: Male
  Weight: 16.6 kg

DRUGS (7)
  1. OMEGAVEN [Suspect]
     Indication: SHORT-BOWEL SYNDROME
     Dosage: 150 ML IV DAILY
     Route: 042
     Dates: start: 20081212
  2. OMEGAVEN [Suspect]
  3. VANCOMYCIN HCL [Suspect]
  4. ETHANOL [Concomitant]
  5. FLUCONAZOLE [Concomitant]
  6. FERRLECIT [Concomitant]
  7. VANCOMYCIN HCL [Concomitant]

REACTIONS (3)
  - IRON DEFICIENCY [None]
  - SERUM FERRITIN DECREASED [None]
  - WEIGHT DECREASED [None]
